FAERS Safety Report 7869934-X (Version None)
Quarter: 2011Q4

REPORT INFORMATION
  Report Type: 
  Country: None (occurrence: None)
  Receive Date: 20111028
  Receipt Date: 20110111
  Transmission Date: 20120403
  Serious: No
  Sender: FDA-Public Use
  Company Number: US-AMGEN-USASP2011001635

PATIENT
  Age: 46 Year
  Sex: Female

DRUGS (3)
  1. SULFASALAZINE [Concomitant]
     Dates: start: 20090101
  2. ENBREL [Suspect]
     Indication: RHEUMATOID ARTHRITIS
     Dosage: 50 MG, QWK
     Dates: start: 20090101
  3. METHOTREXATE [Concomitant]
     Dates: start: 20090101

REACTIONS (4)
  - BUNION [None]
  - ARTHRITIS [None]
  - DRUG INEFFECTIVE [None]
  - INJECTION SITE PAIN [None]
